FAERS Safety Report 5598819-7 (Version None)
Quarter: 2008Q1

REPORT INFORMATION
  Report Type: 
  Country: None (occurrence: None)
  Receive Date: 20080122
  Receipt Date: 20080111
  Transmission Date: 20080703
  Serious: Yes (Hospitalization)
  Sender: FDA-Public Use
  Company Number: US-ELI_LILLY_AND_COMPANY-US200712005257

PATIENT
  Sex: Female

DRUGS (2)
  1. FORTEO [Suspect]
     Indication: OSTEOPOROSIS
  2. VERAPAMIL [Concomitant]

REACTIONS (6)
  - ASTHENIA [None]
  - DYSPNOEA [None]
  - FEELING ABNORMAL [None]
  - INFLUENZA LIKE ILLNESS [None]
  - MALAISE [None]
  - VISUAL DISTURBANCE [None]
